FAERS Safety Report 7996282-X (Version None)
Quarter: 2011Q4

REPORT INFORMATION
  Report Type: 
  Country: None (occurrence: None)
  Receive Date: 20111220
  Receipt Date: 20111209
  Transmission Date: 20120403
  Serious: Yes (Other)
  Sender: FDA-Public Use
  Company Number: IE-ELI_LILLY_AND_COMPANY-IE201108009296

PATIENT
  Age: 46 Year
  Sex: Female
  Weight: 60 kg

DRUGS (5)
  1. BISOPROLOL FUMARATE [Concomitant]
     Dosage: UNK, UNKNOWN
     Route: 065
  2. PLAVIX [Concomitant]
     Indication: PROPHYLAXIS
     Dosage: 75 MG, QD
     Route: 065
     Dates: start: 20101108, end: 20110112
  3. ASPIRIN [Concomitant]
     Dosage: 75 MG, UNK
     Route: 065
     Dates: start: 20101108
  4. DILZEM [Concomitant]
     Dosage: UNK, UNKNOWN
     Route: 065
  5. EFFIENT [Suspect]
     Indication: PROPHYLAXIS
     Dosage: 10 MG, QD
     Route: 065
     Dates: start: 20110112

REACTIONS (8)
  - OCULAR HYPERAEMIA [None]
  - CONTUSION [None]
  - ANXIETY [None]
  - PATIENT-DEVICE INCOMPATIBILITY [None]
  - LOWER RESPIRATORY TRACT INFECTION [None]
  - MENORRHAGIA [None]
  - ANAEMIA [None]
  - HAEMORRHAGE [None]
